FAERS Safety Report 18997226 (Version 3)
Quarter: 2021Q2

REPORT INFORMATION
  Report Type: Report from Study
  Country: TW (occurrence: TW)
  Receive Date: 20210311
  Receipt Date: 20210429
  Transmission Date: 20210717
  Serious: Yes (Other)
  Sender: FDA-Public Use
  Company Number: TW-EMD SERONO-9223595

PATIENT
  Age: 14 Year
  Sex: Male

DRUGS (2)
  1. SAIZEN [Suspect]
     Active Substance: SOMATROPIN
     Indication: SHORT STATURE
     Route: 058
     Dates: start: 20190908, end: 20210303
  2. BIO?CAL [Concomitant]
     Indication: PRODUCT USED FOR UNKNOWN INDICATION
     Dosage: 1 # QD

REACTIONS (4)
  - Oedema peripheral [Recovering/Resolving]
  - Necrosis [Recovering/Resolving]
  - Skin discolouration [Recovering/Resolving]
  - Off label use [Unknown]
